FAERS Safety Report 7765716-8 (Version None)
Quarter: 2011Q3

REPORT INFORMATION
  Report Type: 
  Country: None (occurrence: None)
  Receive Date: 20110921
  Receipt Date: 20110912
  Transmission Date: 20111222
  Serious: Yes (Hospitalization, Other)
  Sender: FDA-Public Use
  Company Number: PHHY2011US81170

PATIENT
  Age: 47 Year
  Sex: Female

DRUGS (8)
  1. ISOSORBIDE MONONITRATE [Concomitant]
     Dosage: 130 MG, QD
  2. FLUOXETINE [Concomitant]
     Dosage: 40 MG, QD
  3. VERAPAMIL [Suspect]
     Dosage: 180 MG, QD
  4. HYDROCHLOROTHIAZIDE [Concomitant]
     Dosage: 12.5 MG, QD
  5. NORMODYNE [Concomitant]
     Dosage: 100 MG, BID
  6. LORAZEPAM [Concomitant]
     Dosage: 2 MG, TID
  7. ZOLPIDEM [Concomitant]
     Dosage: 10 MG, PRN
  8. VERAPAMIL [Suspect]
     Dosage: 60 MG EVERY 6 HOURS

REACTIONS (6)
  - ARTERIOSPASM CORONARY [None]
  - ELECTROCARDIOGRAM ST-T CHANGE [None]
  - WITHDRAWAL SYNDROME [None]
  - BLOOD PRESSURE INCREASED [None]
  - ACUTE MYOCARDIAL INFARCTION [None]
  - CHEST PAIN [None]
